FAERS Safety Report 6981169-1 (Version None)
Quarter: 2010Q3

REPORT INFORMATION
  Report Type: 
  Country: None (occurrence: None)
  Receive Date: 20100914
  Receipt Date: 20100902
  Transmission Date: 20110219
  Serious: Yes (Other)
  Sender: FDA-Public Use
  Company Number: US-PFIZER INC-2010079670

PATIENT
  Sex: Female

DRUGS (5)
  1. CHANTIX [Suspect]
     Indication: SMOKING CESSATION THERAPY
     Dosage: UNK
     Dates: start: 20080101, end: 20080501
  2. MONTELUKAST [Concomitant]
     Indication: HYPERSENSITIVITY
     Dosage: UNK
     Dates: start: 20070101
  3. ZYRTEC [Concomitant]
     Indication: HYPERSENSITIVITY
     Dosage: UNK
     Dates: start: 20070101
  4. CELEBREX [Concomitant]
     Indication: ARTHRALGIA
     Dosage: UNK
     Dates: start: 20010101
  5. COMBIPATCH [Concomitant]
     Indication: HORMONE THERAPY
     Dosage: UNK
     Dates: start: 19950101

REACTIONS (2)
  - DEPRESSION [None]
  - SUICIDAL IDEATION [None]
